FAERS Safety Report 13014940 (Version 1)
Quarter: 2016Q4

REPORT INFORMATION
  Report Type: Spontaneous
  Country: RU (occurrence: RU)
  Receive Date: 20161210
  Receipt Date: 20161210
  Transmission Date: 20170207
  Serious: Yes (Death, Life-Threatening)
  Sender: FDA-Public Use
  Company Number: RU-ASTRAZENECA-2016SF29529

PATIENT
  Age: 60 Year
  Sex: Female
  Weight: 104 kg

DRUGS (7)
  1. OMEZ [Concomitant]
     Active Substance: OMEPRAZOLE
     Indication: ACUTE CORONARY SYNDROME
     Dosage: 20.0MG UNKNOWN
     Route: 048
     Dates: start: 20161018, end: 20161021
  2. FUROSEMIDE. [Concomitant]
     Active Substance: FUROSEMIDE
     Indication: ACUTE CORONARY SYNDROME
     Dosage: 40.0MG UNKNOWN
     Route: 048
     Dates: start: 20161018, end: 20161021
  3. BRILINTA [Suspect]
     Active Substance: TICAGRELOR
     Indication: ACUTE CORONARY SYNDROME
     Route: 048
     Dates: start: 20161018, end: 20161021
  4. CARDIASK [Concomitant]
     Active Substance: ASPIRIN
     Indication: ACUTE CORONARY SYNDROME
     Dosage: 100.0MG UNKNOWN
     Route: 048
     Dates: start: 20161018, end: 20161021
  5. ATORVASTATIN [Concomitant]
     Active Substance: ATORVASTATIN
     Indication: ACUTE CORONARY SYNDROME
     Dosage: 80.0MG UNKNOWN
     Route: 048
     Dates: start: 20161018, end: 20161021
  6. EGILOC [Concomitant]
     Indication: ACUTE CORONARY SYNDROME
     Dosage: 25.0MG UNKNOWN
     Route: 048
     Dates: start: 20161018, end: 20161021
  7. ENALAPRIL [Concomitant]
     Active Substance: ENALAPRIL
     Indication: ACUTE CORONARY SYNDROME
     Dosage: 10.0MG UNKNOWN
     Route: 048
     Dates: start: 20161018, end: 20161021

REACTIONS (5)
  - Arterial perforation [Unknown]
  - Cardiac tamponade [Fatal]
  - Cardio-respiratory arrest [Unknown]
  - Cardiac failure acute [Fatal]
  - Myocardial rupture [Fatal]

NARRATIVE: CASE EVENT DATE: 20161021
